FAERS Safety Report 8493850-6 (Version None)
Quarter: 2012Q3

REPORT INFORMATION
  Report Type: 
  Country: None (occurrence: None)
  Receive Date: 20120706
  Receipt Date: 20120628
  Transmission Date: 20120928
  Serious: Yes (Hospitalization)
  Sender: FDA-Public Use
  Company Number: ES-ALLERGAN-1209148US

PATIENT
  Age: 79 Year
  Sex: Female

DRUGS (9)
  1. COMBIGAN [Suspect]
     Indication: VENOUS THROMBOSIS
     Dosage: UNK
     Route: 047
     Dates: start: 20110101, end: 20120320
  2. EMEPROTON 20 MG CAPSULAS DURAS GASTRORRESISTENTES , 14 CAPSULAS [Concomitant]
     Route: 048
  3. INDAPAMIDA [Concomitant]
     Indication: HYPERTENSION
     Route: 048
     Dates: end: 20110320
  4. XALATAN 0,005%, COLIRIO EN SOLUCION , 1 FRASCO DE 5 ML [Concomitant]
     Indication: PRODUCT USED FOR UNKNOWN INDICATION
     Route: 047
  5. VESICARE 5 MG COMPRIMIDOS RECUBIERTOS CON PELICULA , 30 COMPRIMIDOS [Concomitant]
     Indication: URINARY INCONTINENCE
     Route: 048
  6. ALPHAGAN 2 MG/ML COLIRIO EN SOLUCION , 1 ENVASE DE 5 ML [Concomitant]
     Indication: PRODUCT USED FOR UNKNOWN INDICATION
     Route: 047
  7. LORMETAZEPAM [Concomitant]
     Route: 048
  8. DUPHALAC SOLUCION ORAL SOBRES , 10 SOBRES [Concomitant]
     Route: 048
  9. CYMBALTA 30MG 28 CAPSULAS DURAS [Concomitant]
     Route: 048

REACTIONS (2)
  - SYNCOPE [None]
  - SINUS DISORDER [None]
